FAERS Safety Report 8380554-3 (Version None)
Quarter: 2012Q2

REPORT INFORMATION
  Report Type: 
  Country: None (occurrence: None)
  Receive Date: 20120509
  Receipt Date: 20120424
  Transmission Date: 20120825
  Serious: Yes (Hospitalization)
  Sender: FDA-Public Use
  Company Number: GAM-055-12-AU

PATIENT
  Age: 65 Year
  Sex: Female

DRUGS (1)
  1. OCTAGAM [Suspect]
     Indication: CHRONIC INFLAMMATORY DEMYELINATING POLYRADICULONEUROPATHY
     Dosage: INTRAVENOUS (NOT OTHERWISE SPECIFIED)
     Route: 042
     Dates: start: 20120402, end: 20120402

REACTIONS (5)
  - PULMONARY HYPERTENSION [None]
  - PNEUMONIA [None]
  - PULMONARY EMBOLISM [None]
  - DIARRHOEA [None]
  - VOMITING [None]
